FAERS Safety Report 17140648 (Version 1)
Quarter: 2019Q4

REPORT INFORMATION
  Report Type: Spontaneous
  Country: US (occurrence: US)
  Receive Date: 20191211
  Receipt Date: 20191211
  Transmission Date: 20200122
  Serious: No
  Sender: FDA-Public Use
  Company Number: US-SLATE RUN PHARMACEUTICALS-SLTR-AE-19-95

PATIENT
  Age: 61 Year
  Sex: Female

DRUGS (2)
  1. LINEZOLID. [Concomitant]
     Active Substance: LINEZOLID
  2. VANCOMYCIN HCL FOR INJECTION USP [Suspect]
     Active Substance: VANCOMYCIN HYDROCHLORIDE
     Indication: STAPHYLOCOCCAL INFECTION
     Dosage: TROUGH OF 15-20 MCG/ML

REACTIONS (1)
  - Drug ineffective [Unknown]
